FAERS Safety Report 13911910 (Version 1)
Quarter: 2017Q3

REPORT INFORMATION
  Report Type: Spontaneous
  Country: US (occurrence: US)
  Receive Date: 20170827
  Receipt Date: 20170827
  Transmission Date: 20171127
  Serious: Yes (Life-Threatening, Disabling, Other)
  Sender: FDA-Public Use
  Company Number: None

PATIENT
  Sex: Female
  Weight: 67.95 kg

DRUGS (4)
  1. LISINOPRIL. [Concomitant]
     Active Substance: LISINOPRIL
  2. HYDROCODONE 10 MG -ACETAMINOPHEN (IMPRINT M367) [Suspect]
     Active Substance: ACETAMINOPHEN\HYDROCODONE BITARTRATE
     Indication: PAIN
     Dosage: ?          QUANTITY:2 TABLET(S);?
     Route: 048
     Dates: start: 20170816
  3. ATENOLOL. [Concomitant]
     Active Substance: ATENOLOL
  4. OMEPRAZOLE. [Concomitant]
     Active Substance: OMEPRAZOLE

REACTIONS (10)
  - Incorrect dose administered [None]
  - Palpitations [None]
  - Constipation [None]
  - Product substitution issue [None]
  - Headache [None]
  - Pruritus [None]
  - Nausea [None]
  - Sneezing [None]
  - Diarrhoea [None]
  - Drug effect decreased [None]

NARRATIVE: CASE EVENT DATE: 20170816
